FAERS Safety Report 14977082 (Version 1)
Quarter: 2018Q2

REPORT INFORMATION
  Report Type: Spontaneous
  Country: DE (occurrence: DE)
  Receive Date: 20180606
  Receipt Date: 20180606
  Transmission Date: 20180711
  Serious: Yes (Other)
  Sender: FDA-Public Use
  Company Number: DE-SUN PHARMACEUTICAL INDUSTRIES LTD-2018RR-174798

PATIENT
  Age: 45 Year
  Sex: Female

DRUGS (2)
  1. INTERFERON [Concomitant]
     Active Substance: INTERFERON
     Indication: PREMEDICATION
     Dosage: UNK ()
     Route: 065
  2. IMATINIB [Suspect]
     Active Substance: IMATINIB
     Indication: CHRONIC MYELOID LEUKAEMIA
     Dosage: UNK ()
     Route: 065

REACTIONS (1)
  - Cytogenetic abnormality [Unknown]
